FAERS Safety Report 6656218-0 (Version None)
Quarter: 2010Q1

REPORT INFORMATION
  Report Type: 
  Country: None (occurrence: None)
  Receive Date: 20100329
  Receipt Date: 20100323
  Transmission Date: 20100710
  Serious: Yes (Hospitalization)
  Sender: FDA-Public Use
  Company Number: JP-MERCK-0911USA01854

PATIENT
  Age: 78 Year
  Sex: Female

DRUGS (4)
  1. FOSAMAX [Suspect]
     Indication: OSTEOPOROSIS
     Route: 048
     Dates: start: 20030808
  2. PEPCID [Concomitant]
     Indication: GASTRITIS
     Route: 048
     Dates: start: 20050601
  3. MOBIC [Concomitant]
     Indication: OSTEOARTHRITIS
     Route: 048
     Dates: start: 20030101
  4. ROCALTROL [Concomitant]
     Indication: OSTEOPOROSIS
     Route: 048
     Dates: start: 20050601

REACTIONS (3)
  - FALL [None]
  - FEMUR FRACTURE [None]
  - SNEEZING [None]
